FAERS Safety Report 8873977 (Version 1)
Quarter: 2012Q4

REPORT INFORMATION
  Report Type: 
  Country: AU (occurrence: AU)
  Receive Date: 20121023
  Receipt Date: 20121023
  Transmission Date: 20130627
  Serious: Yes (Other)
  Sender: FDA-Public Use
  Company Number: PHHY2012AU092851

PATIENT
  Sex: Female

DRUGS (1)
  1. CICLOSPORIN [Suspect]

REACTIONS (1)
  - Fluid overload [Unknown]
